FAERS Safety Report 22962369 (Version 2)
Quarter: 2023Q4

REPORT INFORMATION
  Report Type: Other
  Country: US (occurrence: None)
  Receive Date: 20230920
  Receipt Date: 20231010
  Transmission Date: 20240109
  Serious: Yes (Hospitalization)
  Sender: FDA-Public Use
  Company Number: US-ROCHE-3420277

PATIENT
  Age: 68 Year
  Sex: Female
  Weight: 69.008 kg

DRUGS (5)
  1. OCREVUS [Suspect]
     Active Substance: OCRELIZUMAB
     Indication: Relapsing-remitting multiple sclerosis
     Dosage: DOT: 2021-06-15, 2020-11-23, 2023-01-25, 2022-06-22, 2021-12-22, 2020-12-08, 26/JUL/2023
     Route: 042
     Dates: start: 2020
  2. HYDROCHLOROTHIAZIDE [Concomitant]
     Active Substance: HYDROCHLOROTHIAZIDE
     Indication: Hypertension
  3. AMLODIPINE [Concomitant]
     Active Substance: AMLODIPINE BESYLATE
     Indication: Hypertension
  4. AUBAGIO [Concomitant]
     Active Substance: TERIFLUNOMIDE
  5. MAYZENT [Concomitant]
     Active Substance: SIPONIMOD

REACTIONS (6)
  - Asthenia [Not Recovered/Not Resolved]
  - Pneumonia [Recovered/Resolved]
  - COVID-19 [Recovered/Resolved]
  - Hypothyroidism [Not Recovered/Not Resolved]
  - Palpitations [Unknown]
  - Illness [Unknown]

NARRATIVE: CASE EVENT DATE: 20220101
